FAERS Safety Report 10174655 (Version 1)
Quarter: 2014Q2

REPORT INFORMATION
  Report Type: Spontaneous
  Country: US (occurrence: None)
  Receive Date: 20140416
  Receipt Date: 20140416
  Transmission Date: 20141212
  Serious: No
  Sender: FDA-Public Use
  Company Number: 163-POMAL-13113393

PATIENT
  Age: 53 Year
  Sex: Female
  Weight: 62.6 kg

DRUGS (9)
  1. POMALYST [Suspect]
     Indication: MYELOFIBROSIS
     Dosage: 1 IN 2D
     Route: 048
     Dates: start: 201304
  2. COUMADIN (WARFARIN SODIUM) [Concomitant]
  3. SYNTHROID (LEVOPTHYROXINE) [Concomitant]
  4. MINOXIDIL (MINOXIDIL) [Concomitant]
  5. CALCIUM (CALCIUM) [Concomitant]
  6. FOLIC ACID (FOLIC ACID) [Concomitant]
  7. OMEPRAZOLE (OMEPRAZOLE) [Concomitant]
  8. PROBIOTIC (BIFIDOBACTERIUM LACTIS) [Concomitant]
  9. FIBER CHOICE (POLYCARBOPHIL CALCIUM) [Concomitant]

REACTIONS (1)
  - Migraine [None]
